FAERS Safety Report 8782881 (Version 1)
Quarter: 2012Q4

REPORT INFORMATION
  Report Type: Report from Study
  Country: US (occurrence: US)
  Receive Date: 20120913
  Receipt Date: 20120913
  Transmission Date: 20130627
  Serious: No
  Sender: FDA-Public Use
  Company Number: US-VERTEX PHARMACEUTICAL INC.-AE-2012-009861

PATIENT
  Sex: Female

DRUGS (14)
  1. INCIVEK [Suspect]
     Indication: HEPATITIS C
     Route: 048
  2. RIBAVIRIN [Concomitant]
     Indication: HEPATITIS C
  3. PEGASYS [Concomitant]
     Indication: HEPATITIS C
  4. ALDACTONE [Concomitant]
  5. FUROSEMIDE [Concomitant]
  6. NADOLOL [Concomitant]
  7. ACETAMINOPHN SUS [Concomitant]
  8. FOLIC ACID [Concomitant]
  9. CELEXA [Concomitant]
  10. POTASSIUM [Concomitant]
  11. OXYCODONE [Concomitant]
  12. CALCIUM [Concomitant]
  13. MULTIVITAMIN [Concomitant]
  14. VITAMIN B1 [Concomitant]

REACTIONS (1)
  - Rash [Unknown]
